FAERS Safety Report 8536538-5 (Version None)
Quarter: 2012Q3

REPORT INFORMATION
  Report Type: 
  Country: None (occurrence: None)
  Receive Date: 20120712
  Receipt Date: 20120703
  Transmission Date: 20120928
  Serious: Yes (Other)
  Sender: FDA-Public Use
  Company Number: A0983322A

PATIENT
  Sex: 0

DRUGS (1)
  1. CALCIUM CARBONATE [Suspect]
     Indication: INFREQUENT BOWEL MOVEMENTS
     Dosage: UNK / UNK / UNKNOWN

REACTIONS (3)
  - INTENTIONAL OVERDOSE [None]
  - INTENTIONAL DRUG MISUSE [None]
  - WRONG TECHNIQUE IN DRUG USAGE PROCESS [None]
